FAERS Safety Report 6553939-5 (Version None)
Quarter: 2010Q1

REPORT INFORMATION
  Report Type: 
  Country: None (occurrence: None)
  Receive Date: 20100127
  Receipt Date: 20100118
  Transmission Date: 20100710
  Serious: Yes (Death)
  Sender: FDA-Public Use
  Company Number: JP-ABBOTT-09P-087-0616201-00

PATIENT
  Age: 69 Year
  Sex: Male

DRUGS (8)
  1. LEUPROLIDE ACETATE [Suspect]
     Indication: PROSTATE CANCER STAGE IV
     Route: 058
     Dates: start: 20060706, end: 20070918
  2. BICALUTAMIDE [Concomitant]
     Indication: PROSTATE CANCER STAGE IV
     Route: 048
     Dates: start: 20060706, end: 20070118
  3. FLUTAMIDE [Concomitant]
     Indication: PROSTATE CANCER STAGE IV
     Route: 048
     Dates: start: 20070215, end: 20070315
  4. ESTRAMUSTINE PHOSPHATE SODIUM [Concomitant]
     Indication: PROSTATE CANCER STAGE IV
     Route: 048
     Dates: start: 20070315, end: 20070912
  5. FAMOTIDINE D [Concomitant]
     Indication: GASTRITIS
     Route: 048
     Dates: start: 20070613, end: 20070926
  6. DECADRON [Concomitant]
     Indication: PROSTATE CANCER STAGE IV
     Route: 048
     Dates: start: 20070831, end: 20070926
  7. MAGLAX [Concomitant]
     Indication: PROPHYLAXIS
     Route: 048
     Dates: start: 20070919, end: 20070926
  8. PRIMPERAN TAB [Concomitant]
     Indication: PROPHYLAXIS
     Route: 048
     Dates: start: 20070919, end: 20070926

REACTIONS (1)
  - PROSTATE CANCER [None]
